FAERS Safety Report 22609784 (Version 1)
Quarter: 2023Q2

REPORT INFORMATION
  Report Type: Spontaneous
  Country: PL (occurrence: PL)
  Receive Date: 20230616
  Receipt Date: 20230616
  Transmission Date: 20230721
  Serious: Yes (Other)
  Sender: FDA-Public Use
  Company Number: None

PATIENT
  Age: 46 Year
  Sex: Female
  Weight: 55 kg

DRUGS (1)
  1. LEVOFLOXACIN [Suspect]
     Active Substance: LEVOFLOXACIN
     Indication: Product used for unknown indication
     Route: 065
     Dates: start: 20220122

REACTIONS (7)
  - Dyspnoea [Unknown]
  - Rash macular [Unknown]
  - Feeling abnormal [Unknown]
  - Heart rate increased [Unknown]
  - Swelling [Unknown]
  - Aphonia [Unknown]
  - Erythema [Unknown]

NARRATIVE: CASE EVENT DATE: 20220122
